FAERS Safety Report 7071185-6 (Version None)
Quarter: 2010Q4

REPORT INFORMATION
  Report Type: 
  Country: None (occurrence: None)
  Receive Date: 20101029
  Receipt Date: 20101025
  Transmission Date: 20110411
  Serious: Yes (Hospitalization)
  Sender: FDA-Public Use
  Company Number: US-SANOFI-AVENTIS-2010SA055256

PATIENT
  Age: 63 Year
  Sex: Male
  Weight: 77.11 kg

DRUGS (7)
  1. NASACORT AQ [Suspect]
     Route: 045
     Dates: start: 20080401, end: 20080403
  2. ASMANEX TWISTHALER [Suspect]
     Indication: ASTHMA
     Dosage: 2 INHALATIONS
     Route: 055
     Dates: start: 20050401
  3. SEREVENT [Concomitant]
     Indication: ASTHMA
     Dosage: 1 INHALATION
     Route: 055
     Dates: start: 19951110
  4. AYR SALINE NASAL DROPS [Concomitant]
     Indication: NASAL INFLAMMATION
     Dosage: 2 SPRAYS EACH NOSTRIL
     Route: 045
     Dates: start: 20100705
  5. DIOVAN [Concomitant]
     Indication: HYPERTENSION
     Dosage: 1 1/2 PILLS
     Dates: start: 20020401
  6. ACIPHEX [Concomitant]
     Route: 048
     Dates: start: 20070407
  7. CHLORTHALIDONE [Concomitant]
     Indication: HYPERTENSION
     Dosage: 1/2 PILL
     Route: 048
     Dates: start: 20070407

REACTIONS (3)
  - CHEST DISCOMFORT [None]
  - ENDOCARDITIS [None]
  - EPISTAXIS [None]
